FAERS Safety Report 9140578 (Version 2)
Quarter: 2013Q2

REPORT INFORMATION
  Report Type: Spontaneous
  Country: US (occurrence: US)
  Receive Date: 20130305
  Receipt Date: 20130411
  Transmission Date: 20140414
  Serious: Yes (Hospitalization)
  Sender: FDA-Public Use
  Company Number: US-GLAXOSMITHKLINE-A0761939A

PATIENT
  Sex: Female

DRUGS (3)
  1. ALBUTEROL [Suspect]
     Indication: ASTHMA
  2. ADVAIR [Suspect]
     Indication: PRODUCT USED FOR UNKNOWN INDICATION
     Route: 065
     Dates: start: 20090112
  3. ADVAIR [Concomitant]

REACTIONS (4)
  - Dyspnoea [Recovered/Resolved]
  - Disability [Recovered/Resolved]
  - Gallbladder operation [Recovered/Resolved]
  - Drug ineffective [Unknown]
